FAERS Safety Report 20838261 (Version 4)
Quarter: 2022Q4

REPORT INFORMATION
  Report Type: Spontaneous
  Country: JP (occurrence: None)
  Receive Date: 20220517
  Receipt Date: 20221102
  Transmission Date: 20230113
  Serious: Yes (Death)
  Sender: FDA-Public Use
  Company Number: 2022A185098

PATIENT
  Age: 54 Year
  Sex: Male
  Weight: 88 kg

DRUGS (21)
  1. DAPAGLIFLOZIN [Suspect]
     Active Substance: DAPAGLIFLOZIN
     Indication: Chronic kidney disease
     Dosage: DOSE UNKNOWN
     Route: 048
     Dates: start: 202112
  2. DAPAGLIFLOZIN [Suspect]
     Active Substance: DAPAGLIFLOZIN
     Indication: Chronic kidney disease
     Dosage: DOSE UNKNOWN
     Route: 048
     Dates: start: 202112
  3. DAPAGLIFLOZIN [Suspect]
     Active Substance: DAPAGLIFLOZIN
     Indication: Chronic kidney disease
     Dosage: DOSE UNKNOWN
     Route: 048
     Dates: start: 20210612
  4. NEXIUM [Concomitant]
     Active Substance: ESOMEPRAZOLE MAGNESIUM
     Indication: Chronic gastritis
     Dosage: THE PATIENT WAS ON THE DRUG AT A VISIT ON REFERRAL IN MAY 2018.
     Route: 048
  5. ASPIRIN [Concomitant]
     Active Substance: ASPIRIN
     Dosage: NUMBER OF SEPARATE DOSAGES UNKNOWN
     Route: 048
  6. FEBUXOSTAT [Concomitant]
     Active Substance: FEBUXOSTAT
     Indication: Hyperuricaemia
     Route: 048
  7. FEBUXOSTAT [Concomitant]
     Active Substance: FEBUXOSTAT
     Indication: Hyperuricaemia
     Dosage: THE PATIENT WAS ON THE DRUG AT A VISIT ON REFERRAL IN MAY 2018.
     Route: 048
  8. ALFACALCIDOL [Concomitant]
     Active Substance: ALFACALCIDOL
     Dosage: NUMBER OF SEPARATE DOSAGES UNKNOWN
     Route: 048
  9. CARVEDILOL [Concomitant]
     Active Substance: CARVEDILOL
     Indication: Hypertension
     Dosage: THE PATIENT WAS ON THE DRUG AT A VISIT ON REFERRAL IN MAY 2018.
     Route: 065
  10. CARVEDILOL [Concomitant]
     Active Substance: CARVEDILOL
     Indication: Hypertension
     Dosage: THE PATIENT WAS ON THE DRUG AT A VISIT ON REFERRAL IN MAY 2018.
     Route: 048
  11. WARFARIN [Concomitant]
     Active Substance: WARFARIN
     Dosage: NUMBER OF SEPARATE DOSAGES UNKNOWN3.5MG UNKNOWN
     Route: 065
  12. EZETIMIBE [Concomitant]
     Active Substance: EZETIMIBE
     Route: 048
     Dates: start: 20210612
  13. ATORVASTATIN CALCIUM\EZETIMIBE [Concomitant]
     Active Substance: ATORVASTATIN CALCIUM\EZETIMIBE
     Dosage: NUMBER OF SEPARATE DOSAGES UNKNOWN
     Route: 048
  14. SAMSCA [Concomitant]
     Active Substance: TOLVAPTAN
     Indication: Chronic kidney disease
     Dosage: NUMBER OF SEPARATE DOSAGES UNKNOWN
     Route: 048
  15. AZOSEMIDE [Concomitant]
     Active Substance: AZOSEMIDE
     Indication: Chronic kidney disease
     Dosage: NUMBER OF SEPARATE DOSAGES UNKNOWN
     Route: 048
     Dates: start: 20210608
  16. SPIRONOLACTONE [Concomitant]
     Active Substance: SPIRONOLACTONE
     Indication: Chronic kidney disease
     Dosage: NUMBER OF SEPARATE DOSAGES UNKNOWN
     Route: 048
     Dates: start: 20210608
  17. PRASUGREL HYDROCHLORIDE [Concomitant]
     Active Substance: PRASUGREL HYDROCHLORIDE
     Indication: Aortic dissection
     Dosage: THE PATIENT WAS ON THE DRUG AT A VISIT ON REFERRAL IN MAY 2018.
     Route: 048
  18. PREDONINE [Concomitant]
     Active Substance: PREDNISOLONE
     Indication: Focal segmental glomerulosclerosis
     Dosage: THE PATIENT WAS ON THE DRUG AT A VISIT ON REFERRAL IN MAY 2018.
     Route: 065
  19. PREDONINE [Concomitant]
     Active Substance: PREDNISOLONE
     Indication: Focal segmental glomerulosclerosis
     Dosage: THE PATIENT WAS ON THE DRUG AT A VISIT ON REFERRAL IN MAY 2018.
     Route: 048
  20. NEORAL [Concomitant]
     Active Substance: CYCLOSPORINE
     Dosage: NUMBER OF SEPARATE DOSAGES UNKNOWN
     Route: 048
  21. ENALAPRIL [Concomitant]
     Active Substance: ENALAPRIL
     Indication: Hypertension
     Dosage: THE PATIENT WAS ON THE DRUG AT A VISIT ON REFERRAL IN MAY 2018.
     Route: 048

REACTIONS (1)
  - Death [Fatal]

NARRATIVE: CASE EVENT DATE: 20220301
